FAERS Safety Report 10218795 (Version 1)
Quarter: 2014Q2

REPORT INFORMATION
  Report Type: Spontaneous
  Country: US (occurrence: None)
  Receive Date: 20140603
  Receipt Date: 20140603
  Transmission Date: 20141212
  Serious: Yes (Hospitalization)
  Sender: FDA-Public Use
  Company Number: 2014SA016340

PATIENT
  Age: 65 Year
  Sex: Male
  Weight: 65 kg

DRUGS (1)
  1. FABRAZYME/POWDER SOLUTION FOR INFUSION [Suspect]
     Indication: FABRY^S DISEASE
     Route: 042

REACTIONS (4)
  - Fall [None]
  - Hip fracture [None]
  - Disorientation [None]
  - Memory impairment [None]
